FAERS Safety Report 7841933-3 (Version None)
Quarter: 2011Q4

REPORT INFORMATION
  Report Type: 
  Country: None (occurrence: None)
  Receive Date: 20111024
  Receipt Date: 20111024
  Transmission Date: 20120403
  Serious: Yes (Hospitalization, Other)
  Sender: FDA-Public Use
  Company Number: None

PATIENT
  Age: 91 Year
  Sex: Female
  Weight: 65.7716 kg

DRUGS (2)
  1. LOVASTATIN [Suspect]
     Indication: LOW DENSITY LIPOPROTEIN
     Dosage: 80MGS 1 X A DAY
  2. LOVASTATIN [Suspect]
     Indication: BLOOD CHOLESTEROL
     Dosage: 80MGS 1 X A DAY

REACTIONS (1)
  - PARALYSIS [None]
